FAERS Safety Report 7909634 (Version 2)
Quarter: 2014Q3

REPORT INFORMATION
  Report Type: Spontaneous
  Country: US (occurrence: US)
  Receive Date: 20110421
  Receipt Date: 20140829
  Transmission Date: 20150326
  Serious: Yes (Hospitalization, Other)
  Sender: FDA-Public Use
  Company Number: US-ENDO PHARMACEUTICALS INC.-OPER20110085

PATIENT
  Age: 41 Year
  Sex: Female
  Weight: 56.75 kg

DRUGS (3)
  1. OPANA ER [Suspect]
     Active Substance: OXYMORPHONE HYDROCHLORIDE
     Indication: PAIN
     Route: 048
  2. FIORICET [Suspect]
     Active Substance: ACETAMINOPHEN\BUTALBITAL\CAFFEINE
     Indication: MIGRAINE
     Dosage: UNK
     Route: 048
  3. ANTI INFLAMMATORY DRUGS [Concomitant]

REACTIONS (5)
  - Coma [Recovered/Resolved]
  - Apparent death [Recovered/Resolved]
  - Syncope [Recovered/Resolved]
  - Confusional state [Unknown]
  - Disorientation [Unknown]

NARRATIVE: CASE EVENT DATE: 201001
